FAERS Safety Report 4336431-8 (Version None)
Quarter: 2004Q2

REPORT INFORMATION
  Report Type: 
  Country: None (occurrence: None)
  Receive Date: 20040407
  Receipt Date: 20040202
  Transmission Date: 20050107
  Serious: Yes (Other)
  Sender: FDA-Public Use
  Company Number: KII-2004-0009218

PATIENT
  Age: 64 Year
  Sex: Male

DRUGS (1)
  1. MORPHINE SULFATE [Suspect]
     Indication: CANCER PAIN
     Dosage: ORAL
     Route: 048

REACTIONS (2)
  - COMA [None]
  - PAIN EXACERBATED [None]
